FAERS Safety Report 8588825-2 (Version None)
Quarter: 2012Q3

REPORT INFORMATION
  Report Type: 
  Country: None (occurrence: None)
  Receive Date: 20120813
  Receipt Date: 20120802
  Transmission Date: 20120928
  Serious: Yes (Other)
  Sender: FDA-Public Use
  Company Number: US-ASTRAZENECA-2012SE55154

PATIENT
  Age: 42 Year
  Sex: Female

DRUGS (3)
  1. NEXIUM [Suspect]
     Route: 048
  2. PRILOSEC OTC [Suspect]
     Route: 048
  3. PROTONIX [Suspect]
     Route: 065

REACTIONS (5)
  - LARGE INTESTINE PERFORATION [None]
  - ULCER [None]
  - MALAISE [None]
  - DUODENAL ULCER PERFORATION [None]
  - SEPSIS [None]
